FAERS Safety Report 6615851-2 (Version None)
Quarter: 2010Q1

REPORT INFORMATION
  Report Type: 
  Country: None (occurrence: None)
  Receive Date: 20100305
  Receipt Date: 20100225
  Transmission Date: 20100710
  Serious: Yes (Death)
  Sender: FDA-Public Use
  Company Number: US-AMGEN-QUU393870

PATIENT
  Sex: Female

DRUGS (6)
  1. NPLATE [Suspect]
     Indication: IDIOPATHIC THROMBOCYTOPENIC PURPURA
     Dates: start: 20100204, end: 20100211
  2. CYCLOPHOSPHAMIDE [Concomitant]
     Dates: start: 20070301, end: 20070501
  3. CORTICOSTEROIDS [Concomitant]
  4. RITUXIMAB [Concomitant]
  5. CYCLOPHOSPHAMIDE [Concomitant]
  6. IMMU-G [Concomitant]

REACTIONS (2)
  - CHRONIC LYMPHOCYTIC LEUKAEMIA [None]
  - IDIOPATHIC THROMBOCYTOPENIC PURPURA [None]
